FAERS Safety Report 4937280-X (Version None)
Quarter: 2006Q1

REPORT INFORMATION
  Report Type: 
  Country: None (occurrence: None)
  Receive Date: 20060307
  Receipt Date: 20060307
  Transmission Date: 20060701
  Serious: Yes (Hospitalization)
  Sender: FDA-Public Use
  Company Number: None

PATIENT
  Sex: Male
  Weight: 8.4 kg

DRUGS (1)
  1. METHOTREXATE [Suspect]
     Indication: ACUTE LYMPHOCYTIC LEUKAEMIA
     Dosage: 1520 MG
     Dates: start: 20060217, end: 20060302

REACTIONS (9)
  - BLOOD ELECTROLYTES ABNORMAL [None]
  - BLOOD GLUCOSE ABNORMAL [None]
  - CONVULSION [None]
  - DEHYDRATION [None]
  - DRUG DISPENSING ERROR [None]
  - POLYURIA [None]
  - SUBARACHNOID HAEMORRHAGE [None]
  - SUBDURAL HAEMORRHAGE [None]
  - WRONG DRUG ADMINISTERED [None]
